FAERS Safety Report 12824281 (Version 1)
Quarter: 2016Q4

REPORT INFORMATION
  Report Type: Spontaneous
  Country: GR (occurrence: GR)
  Receive Date: 20161007
  Receipt Date: 20161007
  Transmission Date: 20170207
  Serious: Yes (Other)
  Sender: FDA-Public Use
  Company Number: GR-APOPHARMA USA, INC.-2016AP012464

PATIENT
  Age: 9 Year
  Sex: Female

DRUGS (1)
  1. FERRIPROX [Suspect]
     Active Substance: DEFERIPRONE
     Indication: THALASSAEMIA
     Dosage: 75 MG/KG, QD
     Route: 065

REACTIONS (11)
  - Arthralgia [Recovered/Resolved]
  - Drop attacks [Recovered/Resolved]
  - Hypertonia [Recovered/Resolved]
  - Separation anxiety disorder [Recovered/Resolved]
  - School refusal [Recovered/Resolved]
  - Persistent depressive disorder [Recovered/Resolved]
  - Decreased appetite [Recovered/Resolved]
  - Hypotonia [Recovered/Resolved]
  - Walking disability [Recovered/Resolved]
  - Gait disturbance [Recovered/Resolved]
  - Myalgia [Recovered/Resolved]
